FAERS Safety Report 6111613-3 (Version None)
Quarter: 2009Q1

REPORT INFORMATION
  Report Type: 
  Country: None (occurrence: None)
  Receive Date: 20090309
  Receipt Date: 20090224
  Transmission Date: 20090719
  Serious: Yes (Hospitalization)
  Sender: FDA-Public Use
  Company Number: 205717

PATIENT
  Age: 62 Year
  Sex: Male

DRUGS (4)
  1. VINCRISTINE SULFATE [Suspect]
     Dosage: 2 MG, 1 IN 3 WEEKS, INTRAVENOUS
     Route: 042
     Dates: start: 20081114
  2. RITUXIMAB [Suspect]
     Dosage: 690 MG, 1 IN 3 WEEKS,
  3. ENDOXAN /00021101/ [Suspect]
     Dosage: 1380 MG, INTRAVENOUS
     Route: 042
     Dates: start: 20081114
  4. DOXORUBICIN HCL [Suspect]
     Dosage: 92 MG, INTRAVENOUS
     Route: 042
     Dates: start: 20081114

REACTIONS (3)
  - DRUG HYPERSENSITIVITY [None]
  - FEBRILE BONE MARROW APLASIA [None]
  - HAEMATOTOXICITY [None]
